FAERS Safety Report 10411103 (Version 2)
Quarter: 2014Q3

REPORT INFORMATION
  Report Type: Spontaneous
  Country: BR (occurrence: BR)
  Receive Date: 20140826
  Receipt Date: 20140826
  Transmission Date: 20150326
  Serious: Yes (Other)
  Sender: FDA-Public Use
  Company Number: PHHY2014BR086633

PATIENT
  Sex: Male
  Weight: 105 kg

DRUGS (2)
  1. TEGRETOL [Suspect]
     Active Substance: CARBAMAZEPINE
     Indication: PANIC DISORDER
  2. TEGRETOL [Suspect]
     Active Substance: CARBAMAZEPINE
     Indication: DEPRESSION
     Dosage: 2 DF (2 TABLETS), DAILY
     Route: 048

REACTIONS (6)
  - Nervousness [Recovering/Resolving]
  - Disorientation [Recovering/Resolving]
  - Aggression [Recovering/Resolving]
  - Drug ineffective [Recovering/Resolving]
  - Self injurious behaviour [Recovering/Resolving]
  - Agitation [Recovering/Resolving]
